FAERS Safety Report 8185280-1 (Version None)
Quarter: 2012Q1

REPORT INFORMATION
  Report Type: 
  Country: None (occurrence: None)
  Receive Date: 20120305
  Receipt Date: 20120224
  Transmission Date: 20120608
  Serious: Yes (Other)
  Sender: FDA-Public Use
  Company Number: PHHY2011CA78111

PATIENT
  Sex: Male

DRUGS (4)
  1. AFINITOR [Suspect]
     Dosage: 5 MG EVERY DAY
     Route: 048
     Dates: start: 20111201
  2. SANDOSTATIN LAR [Suspect]
     Indication: NEUROENDOCRINE TUMOUR
     Dosage: 60 MG, QMO
     Route: 030
     Dates: start: 20110526
  3. AFINITOR [Suspect]
     Indication: NEUROENDOCRINE TUMOUR
     Dosage: 10 MG, DAILY
     Route: 048
     Dates: start: 20110603, end: 20111201
  4. SANDOSTATIN LAR [Suspect]
     Dosage: 60 MG EVERY 4 WEEKS

REACTIONS (6)
  - DYSGEUSIA [None]
  - RENAL DISORDER [None]
  - FATIGUE [None]
  - ORAL PAIN [None]
  - LOW DENSITY LIPOPROTEIN DECREASED [None]
  - RHEUMATOID ARTHRITIS [None]
